FAERS Safety Report 7591084-0 (Version None)
Quarter: 2011Q3

REPORT INFORMATION
  Report Type: 
  Country: None (occurrence: None)
  Receive Date: 20110705
  Receipt Date: 20110624
  Transmission Date: 20111222
  Serious: Yes (Other)
  Sender: FDA-Public Use
  Company Number: PHHY2011US56896

PATIENT

DRUGS (1)
  1. PREDNISONE [Suspect]
     Dosage: 60 MG, DAILY

REACTIONS (14)
  - ASPERGILLOSIS [None]
  - ESCHERICHIA INFECTION [None]
  - DIARRHOEA [None]
  - RENAL FAILURE [None]
  - MENTAL STATUS CHANGES [None]
  - CYTOMEGALOVIRUS TEST POSITIVE [None]
  - RESPIRATORY FAILURE [None]
  - POSTOPERATIVE ILEUS [None]
  - PNEUMONIA [None]
  - STRONGYLOIDIASIS [None]
  - NEPHROPATHY [None]
  - ENTEROCOCCAL INFECTION [None]
  - MENINGITIS ENTEROCOCCAL [None]
  - HYPOTENSION [None]
